FAERS Safety Report 16386939 (Version 1)
Quarter: 2019Q2

REPORT INFORMATION
  Report Type: Spontaneous
  Country: US (occurrence: US)
  Receive Date: 20190604
  Receipt Date: 20190604
  Transmission Date: 20190711
  Serious: No
  Sender: FDA-Public Use
  Company Number: US-ASTRAZENECA-2019SE72337

PATIENT
  Sex: Female
  Weight: 45.4 kg

DRUGS (2)
  1. SYMBICORT [Suspect]
     Active Substance: BUDESONIDE\FORMOTEROL FUMARATE DIHYDRATE
     Indication: ASTHMA
     Dosage: TWO INHALATIONS, TWICE DAILY, WITH A START DATE OF 2 OR 3 YEARS AGO
     Route: 055
     Dates: start: 20190509
  2. SYMBICORT [Suspect]
     Active Substance: BUDESONIDE\FORMOTEROL FUMARATE DIHYDRATE
     Indication: ASTHMA
     Dosage: 80/4.5 MCG, TWO INHALATIONS, TWICE DAILY, WITH A START DATE OF 2 OR 3 YEARS AGO
     Route: 055

REACTIONS (2)
  - Speech disorder [Recovered/Resolved]
  - Vocal cord disorder [Recovered/Resolved]
